FAERS Safety Report 14950821 (Version 1)
Quarter: 2018Q2

REPORT INFORMATION
  Report Type: Spontaneous
  Country: DE (occurrence: DE)
  Receive Date: 20180530
  Receipt Date: 20180530
  Transmission Date: 20180711
  Serious: Yes (Life-Threatening, Hospitalization)
  Sender: FDA-Public Use
  Company Number: PHHY2018DE010554

PATIENT
  Sex: Female
  Weight: 100 kg

DRUGS (1)
  1. COSENTYX [Suspect]
     Active Substance: SECUKINUMAB
     Indication: PSORIASIS
     Dosage: 1 UNK, QMO
     Route: 058
     Dates: start: 20171024, end: 20180214

REACTIONS (3)
  - Meningitis viral [Not Recovered/Not Resolved]
  - Disturbance in attention [Not Recovered/Not Resolved]
  - Herpes simplex encephalitis [Not Recovered/Not Resolved]

NARRATIVE: CASE EVENT DATE: 20180225
